FAERS Safety Report 13710879 (Version 1)
Quarter: 2017Q3

REPORT INFORMATION
  Report Type: Spontaneous
  Country: FR (occurrence: FR)
  Receive Date: 20170703
  Receipt Date: 20170703
  Transmission Date: 20171127
  Serious: Yes (Other)
  Sender: FDA-Public Use
  Company Number: FR-BAYER-2017-125186

PATIENT
  Age: 37 Year
  Sex: Female
  Weight: 58 kg

DRUGS (1)
  1. MIRENA [Suspect]
     Active Substance: LEVONORGESTREL
     Indication: CONTRACEPTION
     Dosage: 20 MCG/24HR, CONT
     Route: 015
     Dates: start: 20151214

REACTIONS (13)
  - Back pain [Unknown]
  - Nausea [Unknown]
  - Palpitations [Unknown]
  - Anxiety [Unknown]
  - Disturbance in attention [Unknown]
  - Hypotension [Unknown]
  - Hypertension [Unknown]
  - Irritability [Unknown]
  - Depression [Unknown]
  - Headache [Unknown]
  - Vertigo [Unknown]
  - Tinnitus [Unknown]
  - Fatigue [Unknown]

NARRATIVE: CASE EVENT DATE: 20161201
